FAERS Safety Report 10543256 (Version 1)
Quarter: 2014Q4

REPORT INFORMATION
  Report Type: Spontaneous
  Country: US (occurrence: None)
  Receive Date: 20141010
  Receipt Date: 20141010
  Transmission Date: 20150529
  Serious: Yes (Other)
  Sender: FDA-Public Use
  Company Number: 163-POMAL-14080631

PATIENT
  Age: 81 Year
  Sex: Female

DRUGS (3)
  1. LEVOTHYROX (LEVOTHYROXINE) [Concomitant]
  2. POMALYST [Suspect]
     Active Substance: POMALIDOMIDE
     Indication: PLASMA CELL MYELOMA
     Dosage: 21 IN 28 D
     Route: 048
     Dates: start: 20140313
  3. LISINOPRIL-HCTZ (Z-ESTORETIC) (TABLETS) [Concomitant]

REACTIONS (1)
  - Pulmonary embolism [None]

NARRATIVE: CASE EVENT DATE: 2014
